FAERS Safety Report 4663352-3 (Version None)
Quarter: 2005Q2

REPORT INFORMATION
  Report Type: 
  Country: None (occurrence: None)
  Receive Date: 20050517
  Receipt Date: 20050505
  Transmission Date: 20051028
  Serious: Yes (Other)
  Sender: FDA-Public Use
  Company Number: US-JNJFOC-20050501668

PATIENT
  Age: 86 Year
  Sex: Female
  Weight: 49.44 kg

DRUGS (4)
  1. DURAGESIC-100 [Suspect]
     Route: 062
  2. TYLENOL W/ CODEINE [Concomitant]
  3. TYLENOL W/ CODEINE [Concomitant]
  4. AMPICILLIN [Concomitant]
     Dosage: FOR 10 DAYS

REACTIONS (7)
  - APPLICATION SITE REACTION [None]
  - BLOOD PRESSURE INCREASED [None]
  - HOT FLUSH [None]
  - NAUSEA [None]
  - OFF LABEL USE [None]
  - SKIN WRINKLING [None]
  - WEIGHT DECREASED [None]
